FAERS Safety Report 12982673 (Version 1)
Quarter: 2016Q4

REPORT INFORMATION
  Report Type: Spontaneous
  Country: US (occurrence: US)
  Receive Date: 20161128
  Receipt Date: 20161128
  Transmission Date: 20170207
  Serious: Yes (Other)
  Sender: FDA-Public Use
  Company Number: None

PATIENT
  Age: 69 Year
  Sex: Female

DRUGS (1)
  1. TEMOZOLOMIDE 100 MG [Suspect]
     Active Substance: TEMOZOLOMIDE
     Indication: LUNG NEOPLASM MALIGNANT
     Dosage: TEMOZOLOMIDE - ONCE DAILY FOR 5 DAYS - PO
     Route: 048
     Dates: start: 20161112, end: 20161116

REACTIONS (1)
  - Rash generalised [None]

NARRATIVE: CASE EVENT DATE: 20161118
